FAERS Safety Report 10837501 (Version 1)
Quarter: 2015Q1

REPORT INFORMATION
  Report Type: Spontaneous
  Country: TR (occurrence: None)
  Receive Date: 20150218
  Receipt Date: 20150218
  Transmission Date: 20150721
  Serious: Yes (Hospitalization, Other)
  Sender: FDA-Public Use
  Company Number: DEP_02490_2015

PATIENT
  Age: 49 Year
  Sex: Male

DRUGS (3)
  1. DICLOFENAC SODIUM (DICOLOFENAC SODIUM) [Suspect]
     Active Substance: DICLOFENAC SODIUM
     Indication: PAIN
     Dosage: DF
     Route: 030
  2. DICLOFENAC SODIUM (DICOLOFENAC SODIUM) [Suspect]
     Active Substance: DICLOFENAC SODIUM
     Indication: FATIGUE
     Dosage: DF
     Route: 030
  3. DICLOFENAC SODIUM (DICOLOFENAC SODIUM) [Suspect]
     Active Substance: DICLOFENAC SODIUM
     Indication: OROPHARYNGEAL PAIN
     Dosage: DF
     Route: 030

REACTIONS (9)
  - Hyperglycaemia [None]
  - Kounis syndrome [None]
  - Cardiac arrest [None]
  - Hyperlipidaemia [None]
  - Blood immunoglobulin E increased [None]
  - Ventricular fibrillation [None]
  - Blood creatinine increased [None]
  - Myocardial necrosis marker increased [None]
  - Neutrophilia [None]
